FAERS Safety Report 15291613 (Version 1)
Quarter: 2018Q3

REPORT INFORMATION
  Report Type: Spontaneous
  Country: US (occurrence: US)
  Receive Date: 20180817
  Receipt Date: 20180817
  Transmission Date: 20181010
  Serious: Yes (Other)
  Sender: FDA-Public Use
  Company Number: PHHY2018US071011

PATIENT
  Age: 62 Year
  Sex: Male

DRUGS (1)
  1. ENOXAPARIN [Suspect]
     Active Substance: ENOXAPARIN
     Indication: PULMONARY EMBOLISM
     Dosage: 120 MG, BID
     Route: 058

REACTIONS (4)
  - Blister [Recovered/Resolved]
  - Skin haemorrhage [Recovered/Resolved]
  - Skin lesion [Recovered/Resolved]
  - Dermatitis bullous [Recovered/Resolved]
